FAERS Safety Report 15590223 (Version 1)
Quarter: 2018Q4

REPORT INFORMATION
  Report Type: Report from Study
  Country: IT (occurrence: IT)
  Receive Date: 20181106
  Receipt Date: 20181106
  Transmission Date: 20190205
  Serious: Yes (Other)
  Sender: FDA-Public Use
  Company Number: IT-JNJFOC-20181104099

PATIENT
  Age: 74 Year
  Sex: Female

DRUGS (2)
  1. XARELTO [Suspect]
     Active Substance: RIVAROXABAN
     Indication: ATRIAL FIBRILLATION
     Route: 048
     Dates: start: 20180719, end: 20180805
  2. SOTALOL. [Concomitant]
     Active Substance: SOTALOL
     Route: 048

REACTIONS (1)
  - Rash pruritic [Recovering/Resolving]

NARRATIVE: CASE EVENT DATE: 20180801
